FAERS Safety Report 4484129-8 (Version None)
Quarter: 2004Q4

REPORT INFORMATION
  Report Type: 
  Country: None (occurrence: None)
  Receive Date: 20041025
  Receipt Date: 20041004
  Transmission Date: 20050328
  Serious: Yes (Hospitalization, Other)
  Sender: FDA-Public Use
  Company Number: GB-BRISTOL-MYERS SQUIBB COMPANY-12725016

PATIENT
  Age: 57 Year
  Sex: Female
  Weight: 116 kg

DRUGS (8)
  1. CYCLOPHOSPHAMIDE [Suspect]
     Indication: BREAST CANCER
     Route: 042
     Dates: start: 20040517, end: 20040517
  2. PACLITAXEL [Suspect]
     Indication: BREAST CANCER
     Route: 042
     Dates: start: 20040628, end: 20040628
  3. EPIRUBICIN [Suspect]
     Indication: BREAST CANCER
     Route: 042
     Dates: start: 20040517, end: 20040517
  4. GEMCITABINE [Suspect]
     Indication: BREAST CANCER
     Route: 042
     Dates: start: 20040705, end: 20040705
  5. FUROSEMIDE [Concomitant]
     Route: 048
     Dates: start: 20040421
  6. LANSOPRAZOLE [Concomitant]
     Route: 048
     Dates: start: 20040601
  7. BISOPROLOL FUMARATE [Concomitant]
     Route: 048
     Dates: start: 20040401
  8. CANDESARTAN [Concomitant]
     Route: 048
     Dates: start: 20040401

REACTIONS (7)
  - COUGH [None]
  - DYSPNOEA [None]
  - LYMPHOEDEMA [None]
  - NEUTROPENIA [None]
  - PALPITATIONS [None]
  - PYREXIA [None]
  - TACHYCARDIA [None]
